FAERS Safety Report 6370674-7 (Version None)
Quarter: 2009Q3

REPORT INFORMATION
  Report Type: 
  Country: None (occurrence: None)
  Receive Date: 20090923
  Receipt Date: 20070622
  Transmission Date: 20100115
  Serious: Yes (Other)
  Sender: FDA-Public Use
  Company Number: US-ASTRAZENECA-2006UW26385

PATIENT
  Age: 9100 Day
  Sex: Female

DRUGS (17)
  1. SEROQUEL [Suspect]
     Indication: SCHIZOPHRENIA, PARANOID TYPE
     Dosage: 300 MG IN THE MORNING, 600 MG AT NIGHT
     Route: 048
     Dates: start: 20000101
  2. SEROQUEL [Suspect]
     Route: 048
     Dates: start: 20000101
  3. ABILIFY [Concomitant]
  4. CLOZARIL [Concomitant]
  5. GEODON [Concomitant]
     Dates: start: 20020101
  6. HALDOL [Concomitant]
     Dates: start: 20000101
  7. NAVANE [Concomitant]
  8. RISPERDAL [Concomitant]
     Dates: start: 20020101
  9. SOLIAN [Concomitant]
  10. STELAZINE [Concomitant]
  11. THORAZINE [Concomitant]
  12. TRILAFON [Concomitant]
  13. ZYPREXA [Concomitant]
     Dates: start: 20000101
  14. LORAZEPAM [Concomitant]
     Dosage: DISPENSED 10 MG
     Dates: start: 19970512
  15. DIPHENHYDRAMINE HCL [Concomitant]
     Dosage: DISPENSED 50 MG
     Dates: start: 20020207
  16. NICOTINE [Concomitant]
     Dosage: DISPENSED 21 MG
     Dates: start: 20020207
  17. ACETAMIN [Concomitant]
     Dosage: DISPENSED 325 MG
     Dates: start: 19970512

REACTIONS (3)
  - DIABETES MELLITUS [None]
  - NEUROLEPTIC MALIGNANT SYNDROME [None]
  - TYPE 1 DIABETES MELLITUS [None]
